FAERS Safety Report 20119776 (Version 2)
Quarter: 2021Q4

REPORT INFORMATION
  Report Type: Report from Study
  Country: FR (occurrence: FR)
  Receive Date: 20211126
  Receipt Date: 20211201
  Transmission Date: 20220303
  Serious: Yes (Death, Other)
  Sender: FDA-Public Use
  Company Number: FR-NOVARTISPH-NVSC2021FR270656

PATIENT
  Sex: Male
  Weight: 99 kg

DRUGS (1)
  1. VOTRIENT [Suspect]
     Active Substance: PAZOPANIB HYDROCHLORIDE
     Indication: Renal cancer metastatic
     Dosage: UNK
     Route: 048
     Dates: start: 20180622

REACTIONS (4)
  - Fall [Fatal]
  - Renal cancer metastatic [Unknown]
  - Malignant neoplasm progression [Unknown]
  - Balance disorder [Unknown]

NARRATIVE: CASE EVENT DATE: 20210604
